FAERS Safety Report 9439972 (Version 1)
Quarter: 2013Q3

REPORT INFORMATION
  Report Type: Spontaneous
  Country: GB (occurrence: GB)
  Receive Date: 20130805
  Receipt Date: 20130805
  Transmission Date: 20140515
  Serious: Yes (Other)
  Sender: FDA-Public Use
  Company Number: GB-RANBAXY-2013R1-71713

PATIENT
  Age: 32 Year
  Sex: Female
  Weight: 50 kg

DRUGS (4)
  1. SERTRALINE [Suspect]
     Indication: ANXIETY
     Dosage: 50 MG, QD
     Route: 048
     Dates: start: 20120407, end: 20120416
  2. SERTRALINE [Suspect]
     Indication: SOCIAL PHOBIA
  3. AMITRIPTYLINE [Concomitant]
     Indication: PRODUCT USED FOR UNKNOWN INDICATION
     Dosage: 20 MG, QD
     Route: 016
     Dates: start: 20120412
  4. DIANETTE [Concomitant]
     Indication: PRODUCT USED FOR UNKNOWN INDICATION
     Route: 065

REACTIONS (6)
  - Fear [Recovering/Resolving]
  - Paranoia [Recovered/Resolved with Sequelae]
  - Phobia [Recovering/Resolving]
  - Psychotic disorder [Recovered/Resolved with Sequelae]
  - Insomnia [Recovering/Resolving]
  - Violence-related symptom [Recovering/Resolving]
